FAERS Safety Report 4877124-8 (Version None)
Quarter: 2005Q4

REPORT INFORMATION
  Report Type: 
  Country: None (occurrence: None)
  Receive Date: 20051206
  Receipt Date: 20051020
  Transmission Date: 20060501
  Serious: No
  Sender: FDA-Public Use
  Company Number: USA0508105005

PATIENT
  Age: 53 Year
  Sex: Female

DRUGS (4)
  1. CYMBALTA [Suspect]
     Indication: ANXIETY
     Dosage: 60 MG DAY
     Dates: start: 20050725, end: 20050804
  2. ANALGESIC [Concomitant]
  3. XANAX [Concomitant]
  4. PERCOCET [Concomitant]

REACTIONS (18)
  - AGGRESSION [None]
  - AGITATION [None]
  - AMNESIA [None]
  - COMMUNICATION DISORDER [None]
  - CONFUSIONAL STATE [None]
  - DRUG WITHDRAWAL SYNDROME [None]
  - EMOTIONAL DISTRESS [None]
  - HEADACHE [None]
  - INSOMNIA [None]
  - MANIA [None]
  - MENTAL IMPAIRMENT [None]
  - MUSCLE TWITCHING [None]
  - NEUROLOGICAL SYMPTOM [None]
  - NIGHTMARE [None]
  - PANIC REACTION [None]
  - PHOTOPSIA [None]
  - RESTLESS LEGS SYNDROME [None]
  - SUICIDAL IDEATION [None]
